FAERS Safety Report 9541639 (Version 1)
Quarter: 2013Q3

REPORT INFORMATION
  Report Type: Spontaneous
  Country: GB (occurrence: GB)
  Receive Date: 20130923
  Receipt Date: 20130923
  Transmission Date: 20140515
  Serious: Yes (Disabling)
  Sender: FDA-Public Use
  Company Number: GB-JNJFOC-20130911573

PATIENT
  Age: 79 Year
  Sex: Male
  Weight: 75 kg

DRUGS (18)
  1. XARELTO [Suspect]
     Indication: ATRIAL FIBRILLATION
     Route: 048
     Dates: start: 20130614, end: 20130820
  2. XARELTO [Suspect]
     Indication: CEREBROVASCULAR ACCIDENT PROPHYLAXIS
     Route: 048
     Dates: start: 20130614, end: 20130820
  3. GLYCERYL TRINITRATE [Concomitant]
     Route: 065
  4. PARACETAMOL [Concomitant]
     Route: 065
  5. ATORVASTATIN [Concomitant]
     Route: 065
  6. CALCEOS [Concomitant]
     Route: 065
  7. CANDESARTAN [Concomitant]
     Route: 065
  8. FUROSEMIDE [Concomitant]
     Route: 065
  9. ISOSORBIDE [Concomitant]
     Route: 065
  10. LAXIDO [Concomitant]
     Route: 065
  11. SALBUTAMOL [Concomitant]
     Route: 065
  12. SENNA [Concomitant]
     Route: 065
  13. SPIRIVA [Concomitant]
     Route: 065
  14. SYMBICORT [Concomitant]
     Route: 065
  15. AMLODIPINE [Concomitant]
     Route: 065
  16. AMITRIPTYLINE [Concomitant]
     Route: 065
  17. ALENDRONIC ACID [Concomitant]
     Route: 065
  18. TRAMADOL [Concomitant]
     Route: 065

REACTIONS (3)
  - Hypotension [Recovering/Resolving]
  - Fall [Recovered/Resolved]
  - Visual impairment [Unknown]
